FAERS Safety Report 5811814-5 (Version None)
Quarter: 2008Q3

REPORT INFORMATION
  Report Type: 
  Country: None (occurrence: None)
  Receive Date: 20080714
  Receipt Date: 20080704
  Transmission Date: 20090109
  Serious: Yes (Death)
  Sender: FDA-Public Use
  Company Number: MSTR-NO-0807S-0035

PATIENT
  Age: 51 Year
  Sex: Female
  Weight: 48 kg

DRUGS (1)
  1. METASTRON [Suspect]
     Indication: BONE PAIN
     Dosage: 3. ML, SINGLE DOSE, I.V.
     Route: 042
     Dates: start: 20080612, end: 20080612

REACTIONS (2)
  - CONDITION AGGRAVATED [None]
  - THYROID CANCER METASTATIC [None]
